FAERS Safety Report 5850911-5 (Version None)
Quarter: 2008Q3

REPORT INFORMATION
  Report Type: 
  Country: None (occurrence: None)
  Receive Date: 20080820
  Receipt Date: 20080812
  Transmission Date: 20090109
  Serious: Yes (Death, Hospitalization, Other)
  Sender: FDA-Public Use
  Company Number: US-ELI_LILLY_AND_COMPANY-US200808001665

PATIENT
  Sex: Female
  Weight: 71.066 kg

DRUGS (19)
  1. LY573636 SODIUM [Suspect]
     Indication: OVARIAN CANCER
     Dosage: 1769 MG, OTHER
     Route: 042
     Dates: start: 20080728, end: 20080728
  2. PEMETREXED [Suspect]
     Indication: OVARIAN CANCER
     Dosage: 500 MG/M2, OTHER
     Route: 042
     Dates: start: 20080728, end: 20080728
  3. VITAMIN B-12 [Concomitant]
     Indication: PREMEDICATION
     Dosage: UNK, UNK
     Dates: start: 20080728
  4. FOLIC ACID [Concomitant]
     Indication: PREMEDICATION
     Dosage: 1 MG, DAILY (1/D)
     Dates: start: 20080728
  5. BECLOMETHASONE DIPROPIONATE [Concomitant]
     Indication: ASTHMA
     Dosage: 4 D/F, 2/D
     Route: 055
  6. COMPAZINE [Concomitant]
     Indication: NAUSEA
     Dosage: UNK, AS NEEDED
  7. DECADRON                                /CAN/ [Concomitant]
     Indication: PREMEDICATION
     Dosage: UNK, UNK
     Dates: start: 20080727, end: 20080729
  8. DILAUDID [Concomitant]
     Indication: PAIN
  9. LIPITOR [Concomitant]
     Indication: HYPERCHOLESTEROLAEMIA
     Dosage: 10 MG, DAILY (1/D)
  10. METFORMIN HCL [Concomitant]
     Indication: DIABETES MELLITUS
     Dosage: 500 MG, 2/D
  11. NEURONTIN [Concomitant]
     Indication: NEUROPATHY PERIPHERAL
     Dosage: 100 MG, DAILY (1/D)
  12. NORVASC [Concomitant]
     Indication: HYPERTENSION
     Dosage: 5 MG, DAILY (1/D)
  13. TRIAMTERENE [Concomitant]
     Indication: HYPERTENSION
  14. XOPENEX [Concomitant]
     Indication: ASTHMA
  15. ZOFRAN [Concomitant]
     Indication: NAUSEA
     Dosage: UNK, AS NEEDED
  16. IMODIUM [Concomitant]
     Indication: VOMITING
     Dates: start: 20080805
  17. MAXZIDE [Concomitant]
     Dosage: 75 MG, DAILY (1/D)
  18. ALBUTEROL [Concomitant]
     Dosage: 2 D/F, AS NEEDED
     Route: 055
  19. TYLENOL                                 /SCH/ [Concomitant]
     Indication: PAIN
     Dosage: UNK, AS NEEDED

REACTIONS (6)
  - CARDIAC ARREST [None]
  - HYPERGLYCAEMIA [None]
  - HYPOTENSION [None]
  - HYPOXIA [None]
  - LEUKOPENIA [None]
  - NEUTROPENIA [None]
